FAERS Safety Report 9618316 (Version 1)
Quarter: 2013Q4

REPORT INFORMATION
  Report Type: Spontaneous
  Country: US (occurrence: US)
  Receive Date: 20131014
  Receipt Date: 20131014
  Transmission Date: 20140711
  Serious: No
  Sender: FDA-Public Use
  Company Number: US-BIOGENIDEC-2013BI095380

PATIENT
  Sex: Female

DRUGS (2)
  1. AVONEX [Suspect]
     Indication: MULTIPLE SCLEROSIS
     Route: 030
     Dates: start: 20110429, end: 201210
  2. AVONEX [Suspect]
     Indication: MULTIPLE SCLEROSIS
     Route: 030
     Dates: start: 201210

REACTIONS (5)
  - Injection site atrophy [Recovered/Resolved]
  - Vision blurred [Recovered/Resolved]
  - Sensory loss [Unknown]
  - Injection site pain [Recovered/Resolved]
  - Anxiety [Recovered/Resolved]
